FAERS Safety Report 5055875-2 (Version None)
Quarter: 2006Q3

REPORT INFORMATION
  Report Type: 
  Country: None (occurrence: None)
  Receive Date: 20060717
  Receipt Date: 20060717
  Transmission Date: 20061208
  Serious: Yes (Other)
  Sender: FDA-Public Use
  Company Number: None

PATIENT
  Age: 53 Year
  Sex: Female
  Weight: 99.3377 kg

DRUGS (1)
  1. BACTRIM DS [Suspect]
     Indication: STAPHYLOCOCCAL INFECTION
     Dosage: PO
     Route: 048
     Dates: start: 20060616, end: 20060621

REACTIONS (3)
  - CHILLS [None]
  - PYREXIA [None]
  - RASH [None]
